FAERS Safety Report 8039488-6 (Version None)
Quarter: 2012Q1

REPORT INFORMATION
  Report Type: 
  Country: None (occurrence: None)
  Receive Date: 20120111
  Receipt Date: 20111217
  Transmission Date: 20120608
  Serious: No
  Sender: FDA-Public Use
  Company Number: US-AMGEN-USASP2011065838

PATIENT
  Age: 46 Year
  Sex: Male

DRUGS (1)
  1. ENBREL [Suspect]
     Indication: PSORIATIC ARTHROPATHY
     Dosage: 50 MG, QWK
     Dates: start: 20111130, end: 20111210

REACTIONS (5)
  - DIZZINESS [None]
  - PAIN IN EXTREMITY [None]
  - EPISTAXIS [None]
  - NAUSEA [None]
  - MUSCULAR WEAKNESS [None]
